FAERS Safety Report 7607226-4 (Version None)
Quarter: 2011Q3

REPORT INFORMATION
  Report Type: 
  Country: None (occurrence: None)
  Receive Date: 20110713
  Receipt Date: 20110706
  Transmission Date: 20111222
  Serious: Yes (Other)
  Sender: FDA-Public Use
  Company Number: US-PFIZER INC-2011081878

PATIENT
  Sex: Male
  Weight: 58.957 kg

DRUGS (13)
  1. CIALIS [Suspect]
     Dosage: UNK
     Route: 048
     Dates: start: 20110411
  2. LISINOPRIL [Concomitant]
     Dosage: 2.5 MG, 1X/DAY
     Route: 048
     Dates: start: 20110323
  3. LOVAZA [Concomitant]
     Dosage: 2000 MG, 1X/DAY
     Route: 048
     Dates: start: 20090818
  4. GABAPENTIN [Concomitant]
     Dosage: 300 MG, 3X/DAY
     Route: 048
     Dates: start: 20110323
  5. GLUCOPHAGE [Concomitant]
     Indication: DIABETES MELLITUS
     Dosage: 850 MG, 2X/DAY
     Route: 048
     Dates: start: 20110323
  6. TAMSULOSIN [Concomitant]
     Dosage: 0.4 MG, 1X/DAY 1/2 HR BEFORE A MEAL
     Route: 048
     Dates: start: 20110518
  7. HYTRIN [Suspect]
     Dosage: 5 MG, 1X/DAY
     Route: 048
     Dates: start: 20110323
  8. ACETYLSALICYLIC ACID [Concomitant]
     Dosage: 81 MG, 1X/DAY
     Route: 048
     Dates: start: 20091117
  9. NIACIN [Concomitant]
     Dosage: 500 MG, 1X/DAY
     Route: 048
     Dates: start: 20090818
  10. VIAGRA [Suspect]
     Dosage: UNK
     Route: 048
     Dates: start: 20110411
  11. VITAMIN D [Concomitant]
     Dosage: 1000 IU, UNK
     Route: 048
     Dates: start: 20091117
  12. COLCHICINE [Concomitant]
     Dosage: 0.6 MG, 2 TABLETS THEN 1 TABLET
     Route: 048
     Dates: start: 20110323
  13. PROAIR HFA [Concomitant]
     Dosage: 2 DF, EVERY 4 HRS AS NEEDED
     Route: 055
     Dates: start: 20110323

REACTIONS (11)
  - DYSURIA [None]
  - ORGANIC ERECTILE DYSFUNCTION [None]
  - EPICONDYLITIS [None]
  - GROIN PAIN [None]
  - ERECTION INCREASED [None]
  - PAINFUL ERECTION [None]
  - ILIAC ARTERY OCCLUSION [None]
  - DIABETIC NEUROPATHY [None]
  - ACCIDENTAL EXPOSURE [None]
  - NEUROGENIC BLADDER [None]
  - SLEEP DISORDER [None]
